FAERS Safety Report 25417325 (Version 2)
Quarter: 2025Q3

REPORT INFORMATION
  Report Type: Spontaneous
  Country: JP (occurrence: JP)
  Receive Date: 20250610
  Receipt Date: 20250725
  Transmission Date: 20251021
  Serious: Yes (Hospitalization, Other)
  Sender: BRISTOL-MYERS SQUIBB COMPANY
  Company Number: JP-BRISTOL-MYERS SQUIBB COMPANY-2025-079128

PATIENT
  Age: 75 Year
  Sex: Male
  Weight: 58.3 kg

DRUGS (2)
  1. YERVOY [Suspect]
     Active Substance: IPILIMUMAB
     Indication: Oesophageal carcinoma
     Dosage: 2 TIMES ADMINISTRATION
     Route: 041
     Dates: start: 20241217, end: 20250128
  2. OPDIVO [Suspect]
     Active Substance: NIVOLUMAB
     Indication: Oesophageal carcinoma
     Dosage: 3 TIMES ADMINISTRATION
     Route: 041
     Dates: start: 20241217, end: 20250128

REACTIONS (2)
  - Interstitial lung disease [Recovered/Resolved]
  - Fungal infection [Recovered/Resolved]

NARRATIVE: CASE EVENT DATE: 20250304
